FAERS Safety Report 15069686 (Version 1)
Quarter: 2018Q2

REPORT INFORMATION
  Report Type: Spontaneous
  Country: US (occurrence: US)
  Receive Date: 20180626
  Receipt Date: 20180626
  Transmission Date: 20180711
  Serious: No
  Sender: FDA-Public Use
  Company Number: US-AMGEN-USASP2013057365

PATIENT
  Age: 58 Year
  Sex: Female

DRUGS (7)
  1. NEULASTA [Suspect]
     Active Substance: PEGFILGRASTIM
     Indication: PRODUCT USED FOR UNKNOWN INDICATION
     Dosage: UNK
     Route: 065
  2. ALOXI [Concomitant]
     Active Substance: PALONOSETRON HYDROCHLORIDE
     Indication: PREMEDICATION
     Dosage: UNK
  3. RITUXAN [Suspect]
     Active Substance: RITUXIMAB
     Indication: NON-HODGKIN^S LYMPHOMA
     Dosage: 6 WEEKS ON (1 IN 1 WK)
     Route: 065
     Dates: start: 20110110, end: 201106
  4. RITUXAN [Suspect]
     Active Substance: RITUXIMAB
     Dosage: 6 WEEKS OFF, 1 DOSE OF RITUXIMAB ONCE WEEKLY FOR 6 WEEKS
     Route: 065
  5. TREANDA [Suspect]
     Active Substance: BENDAMUSTINE HYDROCHLORIDE
     Indication: NON-HODGKIN^S LYMPHOMA
     Dosage: UNK
     Route: 065
     Dates: start: 20110110, end: 201106
  6. HYDROCORTISONE. [Concomitant]
     Active Substance: HYDROCORTISONE
     Indication: PREMEDICATION
     Dosage: UNK
  7. BENADRYL [Concomitant]
     Active Substance: DIPHENHYDRAMINE HYDROCHLORIDE
     Indication: PREMEDICATION
     Dosage: UNK

REACTIONS (2)
  - Neutrophil count decreased [Unknown]
  - White blood cell count decreased [Unknown]
